FAERS Safety Report 5826701-6 (Version None)
Quarter: 2008Q3

REPORT INFORMATION
  Report Type: 
  Country: None (occurrence: None)
  Receive Date: 20080728
  Receipt Date: 20080728
  Transmission Date: 20090109
  Serious: Yes (Other)
  Sender: FDA-Public Use
  Company Number: None

PATIENT
  Age: 83 Year
  Sex: Female
  Weight: 68.0396 kg

DRUGS (1)
  1. BONIVA [Suspect]
     Indication: OSTEOPOROSIS
     Dosage: ONE PILL ONCE A MONTH PO
     Route: 048
     Dates: start: 20061025, end: 20070301

REACTIONS (6)
  - AMNESIA [None]
  - INSOMNIA [None]
  - NERVOUSNESS [None]
  - PAIN IN JAW [None]
  - STOMACH DISCOMFORT [None]
  - VISUAL IMPAIRMENT [None]
